FAERS Safety Report 4581897-1 (Version None)
Quarter: 2005Q1

REPORT INFORMATION
  Report Type: 
  Country: None (occurrence: None)
  Receive Date: 20050214
  Receipt Date: 20040331
  Transmission Date: 20050727
  Serious: No
  Sender: FDA-Public Use
  Company Number: US-GLAXOSMITHKLINE-A0505421A

PATIENT
  Age: 25 Year
  Sex: Female

DRUGS (2)
  1. LAMICTAL [Suspect]
     Indication: BIPOLAR DISORDER
     Dosage: 100MG TWICE PER DAY
     Route: 048
     Dates: end: 20040327
  2. LEXAPRO [Suspect]

REACTIONS (4)
  - DISORIENTATION [None]
  - DIZZINESS [None]
  - EYE IRRITATION [None]
  - NAUSEA [None]
